FAERS Safety Report 14587084 (Version 1)
Quarter: 2018Q1

REPORT INFORMATION
  Report Type: Spontaneous
  Country: TW (occurrence: TW)
  Receive Date: 20180301
  Receipt Date: 20180301
  Transmission Date: 20180509
  Serious: Yes (Other)
  Sender: FDA-Public Use
  Company Number: TW-PFIZER INC-2018083531

PATIENT
  Age: 42 Year
  Sex: Female

DRUGS (1)
  1. SUTENT [Suspect]
     Active Substance: SUNITINIB MALATE
     Indication: RENAL CELL CARCINOMA
     Dosage: 50 MG, CYCLIC (4 WEEKS ON AND 2 WEEKS OFF)
     Dates: start: 201801

REACTIONS (6)
  - Product use in unapproved indication [Unknown]
  - Hypoaesthesia [Unknown]
  - Hypothyroidism [Unknown]
  - Blood pressure systolic increased [Unknown]
  - Swelling face [Unknown]
  - Eye haemorrhage [Unknown]

NARRATIVE: CASE EVENT DATE: 2018
